FAERS Safety Report 16637772 (Version 2)
Quarter: 2019Q3

REPORT INFORMATION
  Report Type: Spontaneous
  Country: BR (occurrence: BR)
  Receive Date: 20190726
  Receipt Date: 20190807
  Transmission Date: 20191004
  Serious: Yes (Hospitalization, Disabling, Other)
  Sender: FDA-Public Use
  Company Number: BR-009507513-1907BRA012505

PATIENT
  Age: 34 Year
  Sex: Female

DRUGS (2)
  1. TEMODAL [Suspect]
     Active Substance: TEMOZOLOMIDE
     Indication: GLIOBLASTOMA
     Dosage: 20 MG, UNK
     Route: 048
     Dates: start: 2016
  2. LAMOTRIGINE. [Concomitant]
     Active Substance: LAMOTRIGINE
     Indication: SEIZURE
     Dosage: 2 (2X100) TABLETS DAILY
     Route: 048

REACTIONS (9)
  - Hemiplegia [Unknown]
  - Dyspnoea [Unknown]
  - Thrombosis [Unknown]
  - Surgery [Unknown]
  - Brain oedema [Unknown]
  - Diabetes mellitus [Unknown]
  - Pulmonary embolism [Unknown]
  - Bedridden [Unknown]
  - Anticoagulant therapy [Unknown]
